FAERS Safety Report 20551364 (Version 1)
Quarter: 2022Q1

REPORT INFORMATION
  Report Type: Spontaneous
  Country: FR (occurrence: FR)
  Receive Date: 20220304
  Receipt Date: 20220304
  Transmission Date: 20220424
  Serious: Yes (Life-Threatening)
  Sender: FDA-Public Use
  Company Number: None

PATIENT
  Age: 19 Year
  Sex: Female

DRUGS (2)
  1. TRAMADOL HYDROCHLORIDE [Suspect]
     Active Substance: TRAMADOL HYDROCHLORIDE
     Indication: Poisoning deliberate
     Dosage: 260 CP, TRAMADOL (CHLORHYDRATE DE), UNIT DOSE : 100 MG
     Route: 048
     Dates: start: 20220126, end: 20220126
  2. ACETAMINOPHEN\CODEINE PHOSPHATE [Suspect]
     Active Substance: ACETAMINOPHEN\CODEINE PHOSPHATE
     Indication: Poisoning deliberate
     Dosage: 96 CP, STRENGTH : 400 MG/20 MG, SCORED TABLET
     Route: 048
     Dates: start: 20220126, end: 20220126

REACTIONS (3)
  - Hypercapnia [Recovering/Resolving]
  - Coma [Recovering/Resolving]
  - Poisoning deliberate [Recovered/Resolved]

NARRATIVE: CASE EVENT DATE: 20220126
